FAERS Safety Report 20008838 (Version 1)
Quarter: 2021Q4

REPORT INFORMATION
  Report Type: Other
  Country: CN (occurrence: CN)
  Receive Date: 20211028
  Receipt Date: 20211028
  Transmission Date: 20220303
  Serious: Yes (Other)
  Sender: FDA-Public Use
  Company Number: CN-ROCHE-2940813

PATIENT

DRUGS (2)
  1. BEVACIZUMAB [Suspect]
     Active Substance: BEVACIZUMAB
     Indication: Non-small cell lung cancer
     Route: 041
  2. HERBALS [Suspect]
     Active Substance: HERBALS
     Indication: Non-small cell lung cancer
     Route: 041

REACTIONS (7)
  - Myelosuppression [Unknown]
  - Liver injury [Unknown]
  - Renal injury [Unknown]
  - Mucosal inflammation [Unknown]
  - Diarrhoea [Unknown]
  - Nausea [Unknown]
  - Vomiting [Unknown]
